FAERS Safety Report 23007900 (Version 2)
Quarter: 2024Q3

REPORT INFORMATION
  Report Type: Spontaneous
  Country: FR (occurrence: FR)
  Receive Date: 20230929
  Receipt Date: 20240722
  Transmission Date: 20241017
  Serious: Yes (Hospitalization, Other)
  Sender: MYLAN
  Company Number: FR-MYLANLABS-2023M1103316

PATIENT
  Age: 59 Year
  Sex: Female

DRUGS (5)
  1. TRAMADOL [Suspect]
     Active Substance: TRAMADOL\TRAMADOL HYDROCHLORIDE
     Indication: Product used for unknown indication
     Dosage: 350 MILLIGRAM, QD
     Route: 048
  2. BROMAZEPAM [Suspect]
     Active Substance: BROMAZEPAM
     Indication: Product used for unknown indication
     Dosage: 3 DOSAGE FORM, QD
     Route: 048
     Dates: start: 1997
  3. BROMAZEPAM [Suspect]
     Active Substance: BROMAZEPAM
     Dosage: 16 DOSAGE FORM, QD
     Route: 048
  4. RISPERDAL [Suspect]
     Active Substance: RISPERIDONE
     Indication: Sleep disorder
     Dosage: 4 MILLIGRAM, QD (2 TO 4 MG/DAY)
     Route: 048
     Dates: start: 2021
  5. RISPERDAL [Suspect]
     Active Substance: RISPERIDONE
     Dosage: 2 MILLIGRAM, QD
     Route: 048

REACTIONS (4)
  - Extrapyramidal disorder [Recovering/Resolving]
  - Drug abuse [Unknown]
  - Drug use disorder [Not Recovered/Not Resolved]
  - Incorrect product administration duration [Unknown]
